FAERS Safety Report 14103521 (Version 1)
Quarter: 2017Q4

REPORT INFORMATION
  Report Type: Spontaneous
  Country: US (occurrence: US)
  Receive Date: 20171018
  Receipt Date: 20171018
  Transmission Date: 20180321
  Serious: Yes (Other)
  Sender: FDA-Public Use
  Company Number: US-INCYTE CORPORATION-2017IN008895

PATIENT

DRUGS (1)
  1. JAKAFI [Suspect]
     Active Substance: RUXOLITINIB
     Indication: MYELOFIBROSIS
     Dosage: 15 MG, BID
     Route: 048

REACTIONS (8)
  - Scleral discolouration [Unknown]
  - Nail discolouration [Unknown]
  - Skin lesion [Unknown]
  - Skin exfoliation [Unknown]
  - Multiple sclerosis [Unknown]
  - Cerebrovascular accident [Unknown]
  - Hypoaesthesia [Unknown]
  - Onychoclasis [Unknown]

NARRATIVE: CASE EVENT DATE: 2012
